FAERS Safety Report 17486492 (Version 1)
Quarter: 2020Q1

REPORT INFORMATION
  Report Type: Spontaneous
  Country: US (occurrence: US)
  Receive Date: 20200303
  Receipt Date: 20200303
  Transmission Date: 20200409
  Serious: Yes (Hospitalization)
  Sender: FDA-Public Use
  Company Number: US-ASTRAZENECA-2020SE29504

PATIENT
  Sex: Male

DRUGS (2)
  1. LOKELMA [Suspect]
     Active Substance: SODIUM ZIRCONIUM CYCLOSILICATE
     Indication: HYPERKALAEMIA
     Dosage: 10.0G UNKNOWN
     Route: 048
     Dates: start: 20191022
  2. LASIX [Concomitant]
     Active Substance: FUROSEMIDE

REACTIONS (2)
  - Pulmonary oedema [Unknown]
  - Fluid overload [Unknown]
